FAERS Safety Report 16896953 (Version 2)
Quarter: 2021Q3

REPORT INFORMATION
  Report Type: Report from Study
  Country: KR (occurrence: KR)
  Receive Date: 20191009
  Receipt Date: 20210804
  Transmission Date: 20211014
  Serious: Yes (Other)
  Sender: FDA-Public Use
  Company Number: KR-MTPC-MTDA2019-0073475

PATIENT
  Age: 50 Year
  Sex: Female

DRUGS (24)
  1. EDARAVONE INJ [Suspect]
     Active Substance: EDARAVONE
     Indication: AMYOTROPHIC LATERAL SCLEROSIS
     Dosage: 60 MILLIGRAM, QD
     Route: 042
     Dates: start: 20190403, end: 20190416
  2. EDARAVONE INJ [Suspect]
     Active Substance: EDARAVONE
     Dosage: 60 MILLIGRAM, QD
     Route: 042
     Dates: start: 20190816, end: 20190816
  3. EDARAVONE INJ [Suspect]
     Active Substance: EDARAVONE
     Dosage: 60 MILLIGRAM, QD
     Route: 042
     Dates: start: 20190902, end: 20190906
  4. ACETYLCYSTEINE. [Concomitant]
     Active Substance: ACETYLCYSTEINE
     Indication: AMYOTROPHIC LATERAL SCLEROSIS
     Dosage: 200 MILLIGRAM, BID
     Route: 048
     Dates: start: 20190508
  5. EDARAVONE INJ [Suspect]
     Active Substance: EDARAVONE
     Dosage: 60 MILLIGRAM, QD
     Route: 042
     Dates: start: 20190614, end: 20190615
  6. EDARAVONE INJ [Suspect]
     Active Substance: EDARAVONE
     Dosage: 60 MILLIGRAM, QD
     Route: 042
     Dates: start: 20190617, end: 20190622
  7. URSODEOXYCHOLIC ACID [Concomitant]
     Active Substance: URSODIOL
     Indication: PROPHYLAXIS
     Dosage: 100 MILLIGRAM, TID
     Route: 048
     Dates: start: 20190528
  8. EDARAVONE INJ [Suspect]
     Active Substance: EDARAVONE
     Dosage: 60 MILLIGRAM, QD
     Route: 042
  9. PYRIDOSTIGMINE BROMIDE. [Concomitant]
     Active Substance: PYRIDOSTIGMINE BROMIDE
     Indication: AMYOTROPHIC LATERAL SCLEROSIS
     Dosage: 60 MILLIGRAM, BID
     Route: 048
     Dates: start: 20190501
  10. EDARAVONE INJ [Suspect]
     Active Substance: EDARAVONE
     Dosage: 60 MILLIGRAM, QD
     Route: 042
     Dates: start: 20190909, end: 20190910
  11. ERDOSTEINE [Concomitant]
     Active Substance: ERDOSTEINE
     Indication: AMYOTROPHIC LATERAL SCLEROSIS
     Dosage: 300 MILLIGRAM, BID
     Route: 048
     Dates: start: 20190501, end: 20190507
  12. UBIDECARENONE. [Concomitant]
     Active Substance: UBIDECARENONE
     Indication: AMYOTROPHIC LATERAL SCLEROSIS
     Dosage: 5 MILLIGRAM, BID
     Route: 048
     Dates: start: 20190508
  13. RANITIDINE HYDROCHLORIDE. [Concomitant]
     Active Substance: RANITIDINE HYDROCHLORIDE
     Indication: AMYOTROPHIC LATERAL SCLEROSIS
     Dosage: 150 MILLIGRAM, BID
     Route: 048
     Dates: start: 20190501
  14. EDARAVONE INJ [Suspect]
     Active Substance: EDARAVONE
     Dosage: 60 MILLIGRAM, QD
     Route: 042
     Dates: start: 20190522, end: 20190531
  15. EDARAVONE INJ [Suspect]
     Active Substance: EDARAVONE
     Dosage: 60 MILLIGRAM, QD
     Route: 042
     Dates: start: 20190710, end: 20190713
  16. EDARAVONE INJ [Suspect]
     Active Substance: EDARAVONE
     Dosage: 60 MILLIGRAM, QD
     Route: 042
     Dates: start: 20190812, end: 20190814
  17. EDARAVONE INJ [Suspect]
     Active Substance: EDARAVONE
     Dosage: 60 MILLIGRAM, QD
     Route: 042
     Dates: start: 20190830, end: 20190831
  18. YOORITEK [Concomitant]
     Indication: AMYOTROPHIC LATERAL SCLEROSIS
     Dosage: 50 MILLIGRAM, QD
     Route: 048
     Dates: start: 20190416
  19. ZOLPIDEM TARTRATE. [Concomitant]
     Active Substance: ZOLPIDEM TARTRATE
     Indication: AMYOTROPHIC LATERAL SCLEROSIS
     Dosage: 6.25 MILLIGRAM, QD
     Route: 048
     Dates: start: 20190411, end: 20190415
  20. ZOLPIDEM TARTRATE. [Concomitant]
     Active Substance: ZOLPIDEM TARTRATE
     Dosage: 6.25 MILLIGRAM, QD
     Dates: start: 20190502, end: 20190502
  21. EDARAVONE INJ [Suspect]
     Active Substance: EDARAVONE
     Dosage: 60 MILLIGRAM, QD
     Route: 042
     Dates: start: 20190430, end: 20190509
  22. EDARAVONE INJ [Suspect]
     Active Substance: EDARAVONE
     Dosage: 60 MILLIGRAM, QD
     Route: 042
     Dates: start: 20190624, end: 20190625
  23. EDARAVONE INJ [Suspect]
     Active Substance: EDARAVONE
     Dosage: 60 MILLIGRAM, QD
     Route: 042
     Dates: start: 20190715, end: 20190720
  24. EDARAVONE INJ [Suspect]
     Active Substance: EDARAVONE
     Dosage: 60 MILLIGRAM, QD
     Route: 042
     Dates: start: 20190805, end: 20190809

REACTIONS (1)
  - Hepatitis toxic [Recovered/Resolved]

NARRATIVE: CASE EVENT DATE: 20190522
